FAERS Safety Report 8380090-4 (Version None)
Quarter: 2012Q2

REPORT INFORMATION
  Report Type: 
  Country: None (occurrence: None)
  Receive Date: 20120523
  Receipt Date: 20120509
  Transmission Date: 20120825
  Serious: Yes (Hospitalization, Other)
  Sender: FDA-Public Use
  Company Number: FR-VIIV HEALTHCARE LIMITED-B0800496A

PATIENT
  Age: 31 Year
  Sex: Male

DRUGS (2)
  1. ABACAVIR SULFATE/LAMIVUDINE [Suspect]
     Indication: HIV INFECTION
     Route: 048
     Dates: start: 20111201, end: 20120501
  2. OTHER ANTIRETROVIRALS [Concomitant]
     Indication: HIV INFECTION

REACTIONS (2)
  - LIVER DISORDER [None]
  - LACTIC ACIDOSIS [None]
